FAERS Safety Report 5849471-4 (Version None)
Quarter: 2008Q3

REPORT INFORMATION
  Report Type: 
  Country: None (occurrence: None)
  Receive Date: 20080815
  Receipt Date: 20080731
  Transmission Date: 20090109
  Serious: Yes (Other)
  Sender: FDA-Public Use
  Company Number: 2008S1013686

PATIENT
  Sex: Female

DRUGS (2)
  1. LORATADINE [Suspect]
     Indication: SEASONAL ALLERGY
     Dosage: 10 MG; ORAL; DAILY
     Route: 048
     Dates: start: 20080426, end: 20080427
  2. MEDROXYPROGRESTERONE ACETATE (MEDROXYPROGESTERONE ACETATE) [Concomitant]

REACTIONS (2)
  - AGGRESSION [None]
  - SUICIDAL IDEATION [None]
